FAERS Safety Report 20171572 (Version 1)
Quarter: 2021Q4

REPORT INFORMATION
  Report Type: Spontaneous
  Country: JP (occurrence: JP)
  Receive Date: 20211210
  Receipt Date: 20211210
  Transmission Date: 20220303
  Serious: Yes (Other)
  Sender: FDA-Public Use
  Company Number: JP-PFIZER INC-202101699174

PATIENT

DRUGS (1)
  1. EPLERENONE [Suspect]
     Active Substance: EPLERENONE
     Route: 048

REACTIONS (1)
  - Hypokalaemia [Unknown]
